FAERS Safety Report 13351835 (Version 2)
Quarter: 2017Q2

REPORT INFORMATION
  Report Type: Report from Study
  Country: US (occurrence: US)
  Receive Date: 20170320
  Receipt Date: 20170417
  Transmission Date: 20170830
  Serious: Yes (Death)
  Sender: FDA-Public Use
  Company Number: US-BAYER-2017-048799

PATIENT
  Age: 83 Year
  Sex: Female

DRUGS (1)
  1. BETASERON [Suspect]
     Active Substance: INTERFERON BETA-1B
     Indication: MULTIPLE SCLEROSIS
     Dosage: 0.25 MG, QOD
     Route: 058
     Dates: start: 20160211, end: 20170221

REACTIONS (4)
  - Pulmonary sepsis [Fatal]
  - Multiple sclerosis [Fatal]
  - Pneumonia aspiration [Fatal]
  - Dementia Alzheimer^s type [Fatal]
